FAERS Safety Report 16933695 (Version 3)
Quarter: 2020Q2

REPORT INFORMATION
  Report Type: Spontaneous
  Country: US (occurrence: US)
  Receive Date: 20191018
  Receipt Date: 20200530
  Transmission Date: 20200713
  Serious: No
  Sender: FDA-Public Use
  Company Number: US-TEVA-2019-US-1125754

PATIENT
  Sex: Female

DRUGS (7)
  1. COPAXONE [Suspect]
     Active Substance: GLATIRAMER ACETATE
     Indication: MULTIPLE SCLEROSIS
     Route: 058
     Dates: start: 201710
  2. MAGNESIUM [Concomitant]
     Active Substance: MAGNESIUM
  3. FAMOTIDINE. [Concomitant]
     Active Substance: FAMOTIDINE
  4. GABAPENTIN. [Concomitant]
     Active Substance: GABAPENTIN
  5. BISOPROLOL [Concomitant]
     Active Substance: BISOPROLOL
  6. VITAMIN D3 [Concomitant]
     Active Substance: CHOLECALCIFEROL
  7. CALCIUM [Concomitant]
     Active Substance: CALCIUM

REACTIONS (9)
  - Injection site pain [Recovered/Resolved]
  - Injection site erythema [Recovered/Resolved]
  - Injection site discolouration [Recovered/Resolved]
  - Skin exfoliation [Recovered/Resolved]
  - Injection site exfoliation [Unknown]
  - Injection site pain [Unknown]
  - Injection site scar [Unknown]
  - Injection site mass [Unknown]
  - Device malfunction [Unknown]
